FAERS Safety Report 9013408 (Version 4)
Quarter: 2015Q1

REPORT INFORMATION
  Report Type: Report from Study
  Country: JP (occurrence: JP)
  Receive Date: 20130114
  Receipt Date: 20150313
  Transmission Date: 20150721
  Serious: Yes (Death)
  Sender: FDA-Public Use
  Company Number: JP-PFIZER INC-2013013409

PATIENT
  Age: 92 Year
  Sex: Female
  Weight: 62 kg

DRUGS (22)
  1. MEDICON [Concomitant]
     Active Substance: DEXTROMETHORPHAN HYDROBROMIDE
     Dosage: 15 MG, AS NEEDED
     Route: 048
     Dates: end: 20121006
  2. LOXONIN [Concomitant]
     Active Substance: LOXOPROFEN SODIUM
     Dosage: 60 MG, AS NEEDED
     Route: 048
  3. TRANSAMIN [Concomitant]
     Active Substance: TRANEXAMIC ACID
     Dosage: 250 MG, 2X/DAY
     Dates: end: 20121012
  4. NEXIUM [Concomitant]
     Active Substance: ESOMEPRAZOLE MAGNESIUM
     Dosage: 20 MG, 1X/DAY
     Route: 048
     Dates: start: 20121004
  5. VITAMEDIN CAPSULE [Concomitant]
     Dosage: 1 MG, 3X/DAY
     Route: 048
     Dates: end: 20121013
  6. MYSLEE [Concomitant]
     Active Substance: ZOLPIDEM TARTRATE
     Dosage: 5 MG, AS NEEDED
     Route: 048
  7. RINDERON V [Concomitant]
     Active Substance: BETAMETHASONE VALERATE
     Dosage: 0.5 MG, 2X/DAY
     Route: 048
     Dates: start: 20121004
  8. BIOFERMIN [Concomitant]
     Active Substance: BACILLUS SUBTILIS\LACTOBACILLUS ACIDOPHILUS\STREPTOCOCCUS FAECAIS
     Dosage: 1 G, 3X/DAY
     Route: 048
     Dates: start: 20121004, end: 20121012
  9. ATELEC [Concomitant]
     Active Substance: CILNIDIPINE
     Dosage: 10 MG, 1X/DAY
     Route: 048
  10. BUSCOPAN [Concomitant]
     Active Substance: BUTYLSCOPOLAMINE BROMIDE
     Dosage: 10 MG, AS NEEDED
     Route: 048
     Dates: start: 20121007, end: 20121012
  11. XALKORI [Suspect]
     Active Substance: CRIZOTINIB
     Indication: NON-SMALL CELL LUNG CANCER
     Dosage: 200 MG, 2X/DAY
     Route: 048
     Dates: start: 20121004, end: 20121011
  12. OXYCONTIN [Concomitant]
     Active Substance: OXYCODONE HYDROCHLORIDE
     Dosage: 10 MG, 2X/DAY
     Route: 048
     Dates: start: 20121011
  13. SAVETENS [Concomitant]
     Active Substance: ATENOLOL
     Dosage: 25 MG, 1X/DAY
     Route: 048
     Dates: end: 20121013
  14. BUSCOPAN [Concomitant]
     Active Substance: BUTYLSCOPOLAMINE BROMIDE
     Dosage: 20 MG, AS NEEDED
     Route: 042
     Dates: start: 20121011
  15. GRANISETRON [Concomitant]
     Active Substance: GRANISETRON
     Dosage: 3 MG, 1X/DAY
     Dates: start: 20121004, end: 20121006
  16. DEXART [Concomitant]
     Active Substance: DEXAMETHASONE SODIUM PHOSPHATE
     Dosage: 6.6 MG, 1X/DAY
     Dates: start: 20121004, end: 20121006
  17. MICARDIS [Concomitant]
     Active Substance: TELMISARTAN
     Dosage: 80 MG, 1X/DAY
     Route: 048
     Dates: end: 20121013
  18. ADONA [Concomitant]
     Active Substance: CARBAZOCHROME SODIUM SULFONATE
     Dosage: 10 MG, 3X/DAY
     Route: 048
     Dates: end: 20121012
  19. PRIMPERAN [Concomitant]
     Active Substance: METOCLOPRAMIDE HYDROCHLORIDE
     Dosage: 5 MG, 3X/DAY
     Route: 048
     Dates: start: 20121004, end: 20121012
  20. MAGMITT [Concomitant]
     Active Substance: MAGNESIUM OXIDE
     Dosage: 500 MG, 1X/DAY
     Route: 048
  21. DOMPERIDONE [Concomitant]
     Active Substance: DOMPERIDONE
     Dosage: 10 MG, AS NEEDED
     Route: 048
     Dates: start: 20121006, end: 20121006
  22. LOPEMIN [Concomitant]
     Active Substance: LOPERAMIDE HYDROCHLORIDE
     Dosage: 1 MG, 2X/DAY
     Route: 048
     Dates: start: 20121007, end: 20121010

REACTIONS (1)
  - Haematemesis [Fatal]

NARRATIVE: CASE EVENT DATE: 20121018
